FAERS Safety Report 11484339 (Version 1)
Quarter: 2015Q3

REPORT INFORMATION
  Report Type: Spontaneous
  Country: US (occurrence: US)
  Receive Date: 20150903
  Receipt Date: 20150903
  Transmission Date: 20151125
  Serious: No
  Sender: FDA-Public Use
  Company Number: US-ELI_LILLY_AND_COMPANY-US201207004483

PATIENT
  Sex: Female

DRUGS (1)
  1. CYMBALTA [Suspect]
     Active Substance: DULOXETINE HYDROCHLORIDE
     Indication: DEPRESSION
     Dosage: 60 MG, QD
     Route: 065
     Dates: start: 20120705

REACTIONS (7)
  - Abdominal pain [Unknown]
  - Urine flow decreased [Not Recovered/Not Resolved]
  - Insomnia [Not Recovered/Not Resolved]
  - Nausea [Not Recovered/Not Resolved]
  - Back pain [Not Recovered/Not Resolved]
  - Gait disturbance [Not Recovered/Not Resolved]
  - Dyspepsia [Unknown]
